FAERS Safety Report 5742622-1 (Version None)
Quarter: 2008Q2

REPORT INFORMATION
  Report Type: 
  Country: None (occurrence: None)
  Receive Date: 20080515
  Receipt Date: 20080509
  Transmission Date: 20081010
  Serious: Yes (Life-Threatening)
  Sender: FDA-Public Use
  Company Number: 129-C5013-08041826

PATIENT
  Age: 84 Year
  Sex: Female

DRUGS (3)
  1. CC-5013/PLACEBO (LENALIDOMIDE) (CAPSULES) [Suspect]
     Indication: MULTIPLE MYELOMA
     Dosage: 2.5 MG, DAILY, ORAL
     Route: 048
     Dates: start: 20080318, end: 20080407
  2. MELPHALAN(MELPHALAN) [Suspect]
     Indication: MULTIPLE MYELOMA
     Dosage: 6 MG
     Dates: start: 20080315, end: 20080321
  3. PREDNISONE TAB [Suspect]
     Indication: MULTIPLE MYELOMA
     Dosage: 128 MG
     Dates: start: 20080315, end: 20080321

REACTIONS (1)
  - ANAEMIA [None]
